FAERS Safety Report 7620181-6 (Version None)
Quarter: 2011Q3

REPORT INFORMATION
  Report Type: 
  Country: None (occurrence: None)
  Receive Date: 20110719
  Receipt Date: 20110705
  Transmission Date: 20111222
  Serious: Yes (Other)
  Sender: FDA-Public Use
  Company Number: PHHY2011US59970

PATIENT
  Age: 86 Year
  Sex: Female

DRUGS (6)
  1. DIOVAN [Suspect]
  2. EXFORGE HCT [Suspect]
  3. EXFORGE [Suspect]
     Dosage: 1 DF, QD (160 MG VALS AND 5 MG AMLO)
  4. NEXIUM [Suspect]
     Dosage: 1 DF, QD
  5. DIOVAN HCT [Suspect]
  6. TYLENOL-500 [Concomitant]

REACTIONS (3)
  - VISUAL IMPAIRMENT [None]
  - HYPOTENSION [None]
  - CONFUSIONAL STATE [None]
